FAERS Safety Report 15332135 (Version 1)
Quarter: 2018Q3

REPORT INFORMATION
  Report Type: Spontaneous
  Country: DK (occurrence: DK)
  Receive Date: 20180829
  Receipt Date: 20180829
  Transmission Date: 20181010
  Serious: Yes (Life-Threatening)
  Sender: FDA-Public Use
  Company Number: PHHY2018DK082054

PATIENT
  Age: 67 Year
  Sex: Female

DRUGS (1)
  1. VORICONAZOLE. [Suspect]
     Active Substance: VORICONAZOLE
     Indication: BRONCHOPULMONARY ASPERGILLOSIS
     Dosage: 600 MG, QD
     Route: 048
     Dates: start: 20180705, end: 20180713

REACTIONS (4)
  - Multiple organ dysfunction syndrome [Recovering/Resolving]
  - Renal impairment [Recovering/Resolving]
  - Pancreatitis acute [Recovering/Resolving]
  - Bacterial sepsis [Recovering/Resolving]

NARRATIVE: CASE EVENT DATE: 20180713
